FAERS Safety Report 4679575-3 (Version None)
Quarter: 2005Q2

REPORT INFORMATION
  Report Type: 
  Country: None (occurrence: None)
  Receive Date: 20050531
  Receipt Date: 20050518
  Transmission Date: 20051028
  Serious: Yes (Disabling)
  Sender: FDA-Public Use
  Company Number: 805#1#2005-00046

PATIENT
  Age: 3 Day
  Sex: Male
  Weight: 2.208 kg

DRUGS (8)
  1. PROSTANDIN                           (ALPROSTADIL (PAOD)) [Suspect]
     Indication: HEART DISEASE CONGENITAL
     Dosage: SEE IMAGE, INTRAVENOUS DRIP
     Route: 041
     Dates: start: 20041216, end: 20041216
  2. PROSTANDIN                           (ALPROSTADIL (PAOD)) [Suspect]
     Indication: HEART DISEASE CONGENITAL
     Dosage: SEE IMAGE, INTRAVENOUS DRIP
     Route: 041
     Dates: start: 20041216, end: 20041216
  3. PROSTANDIN                           (ALPROSTADIL (PAOD)) [Suspect]
     Indication: HEART DISEASE CONGENITAL
     Dosage: SEE IMAGE, INTRAVENOUS DRIP
     Route: 041
     Dates: start: 20041216, end: 20041217
  4. PROSTANDIN                           (ALPROSTADIL (PAOD)) [Suspect]
     Indication: HEART DISEASE CONGENITAL
     Dosage: SEE IMAGE, INTRAVENOUS DRIP
     Route: 041
     Dates: start: 20041217, end: 20041227
  5. CALCIUM GLUCONATE [Concomitant]
  6. POTASSIUM CHLORIDE [Concomitant]
  7. VECURONIUM BROMIDE [Concomitant]
  8. MIDAZOLAM HCL [Concomitant]

REACTIONS (1)
  - NEONATAL APNOEIC ATTACK [None]
